FAERS Safety Report 7491295-9 (Version None)
Quarter: 2011Q2

REPORT INFORMATION
  Report Type: 
  Country: None (occurrence: None)
  Receive Date: 20110519
  Receipt Date: 20110511
  Transmission Date: 20111010
  Serious: Yes (Death, Hospitalization)
  Sender: FDA-Public Use
  Company Number: B0711758A

PATIENT
  Sex: Male
  Weight: 48 kg

DRUGS (12)
  1. PROMACTA [Suspect]
     Indication: IDIOPATHIC THROMBOCYTOPENIC PURPURA
     Dosage: 12.5MG PER DAY
     Route: 048
     Dates: start: 20110221, end: 20110401
  2. PLAVIX [Concomitant]
     Dosage: 75MG PER DAY
     Route: 048
  3. SULFAMETHOXAZOLE [Concomitant]
     Route: 048
  4. ZOLPIDEM [Concomitant]
     Dosage: 10MG PER DAY
     Route: 048
  5. SIGMART [Concomitant]
     Dosage: 20MG PER DAY
     Route: 048
  6. TANATRIL [Concomitant]
     Dosage: 5MG PER DAY
     Route: 048
  7. CARVEDILOL [Concomitant]
     Dosage: 2.5MG PER DAY
     Route: 048
  8. PREDNISOLONE [Concomitant]
     Indication: IDIOPATHIC THROMBOCYTOPENIC PURPURA
     Dosage: 5MG PER DAY
     Route: 048
     Dates: start: 20110316
  9. LANSOPRAZOLE [Concomitant]
     Dosage: 30MG PER DAY
     Route: 048
  10. OLMESARTAN MEDOXOMIL [Concomitant]
     Dosage: 20MG PER DAY
     Route: 048
  11. PREDNISOLONE [Concomitant]
     Dosage: 2.5MG PER DAY
     Route: 048
     Dates: start: 20110317
  12. ASPIRIN [Concomitant]
     Dosage: 100MG PER DAY
     Route: 048

REACTIONS (2)
  - ARTERIAL OCCLUSIVE DISEASE [None]
  - RENAL FAILURE [None]
